FAERS Safety Report 5413440-9 (Version None)
Quarter: 2007Q3

REPORT INFORMATION
  Report Type: 
  Country: None (occurrence: None)
  Receive Date: 20070810
  Receipt Date: 20070810
  Transmission Date: 20080115
  Serious: Yes (Hospitalization)
  Sender: FDA-Public Use
  Company Number: None

PATIENT
  Age: 89 Year
  Sex: Female

DRUGS (14)
  1. AVELOX [Suspect]
     Indication: PNEUMONIA
     Dosage: 400 MG DAILY IV DRIP
     Route: 041
     Dates: start: 20060710, end: 20060714
  2. HALOPERIDOL [Concomitant]
  3. TYLENOL (CAPLET) [Concomitant]
  4. ZOLPIDEM TARTRATE [Concomitant]
  5. NYSTATIN [Concomitant]
  6. RISPERIDONE [Concomitant]
  7. METOPROLOL SUCCINATE [Concomitant]
  8. MOXIFLOXACIN HCL [Concomitant]
  9. CLOPIDOGREL [Concomitant]
  10. CAPTOPRIL [Concomitant]
  11. ATORVASTATIN CALCIUM [Concomitant]
  12. PANTOPRAZOLE SODIUM [Concomitant]
  13. ASPIRIN [Concomitant]
  14. HEPARIN [Concomitant]

REACTIONS (2)
  - MENTAL STATUS CHANGES [None]
  - PNEUMONIA [None]
